FAERS Safety Report 14292570 (Version 9)
Quarter: 2018Q2

REPORT INFORMATION
  Report Type: Spontaneous
  Country: FR (occurrence: FR)
  Receive Date: 20171215
  Receipt Date: 20180511
  Transmission Date: 20180711
  Serious: Yes (Hospitalization, Disabling, Other)
  Sender: FDA-Public Use
  Company Number: FR-PFIZER INC-2017527832

PATIENT
  Age: 26 Year
  Sex: Female

DRUGS (2)
  1. JASMINELLE [Suspect]
     Active Substance: DROSPIRENONE
     Dosage: UNK
     Route: 048
     Dates: start: 20100318
  2. ADEPAL [Suspect]
     Active Substance: ETHINYL ESTRADIOL\LEVONORGESTREL
     Indication: CONTRACEPTION
     Dosage: UNK
     Route: 048
     Dates: start: 20130114

REACTIONS (15)
  - Hypoaesthesia [Unknown]
  - Motor dysfunction [Unknown]
  - Facial paralysis [Unknown]
  - Dysarthria [Unknown]
  - Headache [Unknown]
  - Carotid artery dissection [Unknown]
  - Hemiplegia [Unknown]
  - Neck pain [Unknown]
  - Hemianaesthesia [Unknown]
  - Gait disturbance [Unknown]
  - Ischaemic stroke [Recovered/Resolved with Sequelae]
  - Stress [Unknown]
  - Hemianopia homonymous [Unknown]
  - Adjustment disorder with depressed mood [Unknown]
  - Ischaemic cerebral infarction [Recovered/Resolved with Sequelae]

NARRATIVE: CASE EVENT DATE: 20140426
